FAERS Safety Report 7302035-8 (Version None)
Quarter: 2011Q1

REPORT INFORMATION
  Report Type: 
  Country: None (occurrence: None)
  Receive Date: 20110218
  Receipt Date: 20110211
  Transmission Date: 20110831
  Serious: Yes (Other)
  Sender: FDA-Public Use
  Company Number: GB-PFIZER INC-2010130909

PATIENT
  Age: 59 Year
  Sex: Male
  Weight: 84 kg

DRUGS (4)
  1. VIAGRA [Suspect]
     Indication: ERECTILE DYSFUNCTION
     Dosage: 50 MG, AS NEEDED
     Route: 048
     Dates: start: 20100401, end: 20101001
  2. LISINOPRIL [Concomitant]
     Indication: HYPERTENSION
     Dosage: 5 MG, 1X/DAY
     Route: 048
  3. LOPERAMIDE [Concomitant]
     Indication: DIARRHOEA
     Dosage: 2 MG, 1X/DAY
     Route: 048
  4. INDOMETHACIN [Concomitant]
     Indication: ARTHRITIS REACTIVE
     Dosage: 50 MG, AS NEEDED
     Route: 048

REACTIONS (3)
  - RETINAL VEIN OCCLUSION [None]
  - BLOOD PRESSURE DECREASED [None]
  - MYDRIASIS [None]
